FAERS Safety Report 11800899 (Version 3)
Quarter: 2016Q1

REPORT INFORMATION
  Report Type: Spontaneous
  Country: JP (occurrence: JP)
  Receive Date: 20151204
  Receipt Date: 20160111
  Transmission Date: 20160525
  Serious: Yes (Other)
  Sender: FDA-Public Use
  Company Number: JP-ROCHE-1672836

PATIENT
  Age: 64 Year
  Sex: Female

DRUGS (11)
  1. GASMOTIN [Concomitant]
     Active Substance: MOSAPRIDE CITRATE
     Route: 048
  2. LUVOX [Concomitant]
     Active Substance: FLUVOXAMINE MALEATE
     Dosage: DOSAGE IS UNCERTAIN.
     Route: 048
  3. METHYCOBAL [Concomitant]
     Active Substance: METHYLCOBALAMIN
     Dosage: DOSAGE IS UNCERTAIN.
     Route: 048
  4. ALESION [Concomitant]
     Active Substance: EPINASTINE HYDROCHLORIDE
     Dosage: DOSAGE IS UNCERTAIN.
     Route: 048
  5. SOVALDI [Suspect]
     Active Substance: SOFOSBUVIR
     Indication: CHRONIC HEPATITIS C
     Dosage: THE FRACTIONATION DOSE FREQUENCY IS UNCERTAIN.
     Route: 048
     Dates: start: 20150826, end: 2015
  6. PURSENNID [Concomitant]
     Active Substance: SENNOSIDES A AND B
     Dosage: DOSAGE IS UNCERTAIN.
     Route: 048
  7. ROHYPNOL [Concomitant]
     Active Substance: FLUNITRAZEPAM
     Dosage: DOSAGE IS UNCERTAIN.
     Route: 048
  8. ALOSENN [Concomitant]
     Active Substance: SENNA LEAF
     Dosage: DOSAGE IS UNCERTAIN.
     Route: 065
  9. ALLERMIST [Concomitant]
     Active Substance: FLUTICASONE FUROATE
     Dosage: DOSAGE IS UNCERTAIN.
     Route: 065
  10. NEXIUM [Concomitant]
     Active Substance: ESOMEPRAZOLE MAGNESIUM
     Dosage: DOSAGE IS UNCERTAIN.
     Route: 048
  11. COPEGUS [Suspect]
     Active Substance: RIBAVIRIN
     Indication: CHRONIC HEPATITIS C
     Dosage: THE FRACTIONATION DOSE FREQUENCY IS UNCERTAIN.
     Route: 048
     Dates: start: 20150826

REACTIONS (1)
  - Blood triglycerides increased [Recovered/Resolved]

NARRATIVE: CASE EVENT DATE: 20151102
